FAERS Safety Report 25151617 (Version 1)
Quarter: 2025Q2

REPORT INFORMATION
  Report Type: Report from Study
  Country: JP (occurrence: JP)
  Receive Date: 20250402
  Receipt Date: 20250402
  Transmission Date: 20250717
  Serious: Yes (Life-Threatening, Other)
  Sender: BAUSCH AND LOMB
  Company Number: JP-BAUSCH-BL-2025-004278

PATIENT
  Age: 65 Year
  Sex: Male
  Weight: 54.3 kg

DRUGS (34)
  1. DEMSER [Suspect]
     Active Substance: METYROSINE
     Indication: Blood catecholamines increased
     Route: 048
     Dates: start: 20240129, end: 20240130
  2. DEMSER [Suspect]
     Active Substance: METYROSINE
     Route: 048
     Dates: start: 20240131, end: 20240206
  3. DEMSER [Suspect]
     Active Substance: METYROSINE
     Route: 048
     Dates: start: 20240207, end: 20240213
  4. DEMSER [Suspect]
     Active Substance: METYROSINE
     Route: 048
     Dates: start: 20240214, end: 20240221
  5. DEMSER [Suspect]
     Active Substance: METYROSINE
     Route: 048
     Dates: start: 20240222, end: 20240314
  6. LANDIOLOL HYDROCHLORIDE [Suspect]
     Active Substance: LANDIOLOL HYDROCHLORIDE
     Indication: Product used for unknown indication
     Route: 041
  7. ROZEREM [Suspect]
     Active Substance: RAMELTEON
     Indication: Insomnia
     Route: 048
     Dates: start: 20240130, end: 20240205
  8. DAYVIGO [Suspect]
     Active Substance: LEMBOREXANT
     Indication: Insomnia
     Route: 048
     Dates: start: 20240130, end: 20240205
  9. DAYVIGO [Suspect]
     Active Substance: LEMBOREXANT
     Route: 048
     Dates: start: 20240220, end: 20240314
  10. OMEPRAZOLE [Concomitant]
     Active Substance: OMEPRAZOLE
     Indication: Product used for unknown indication
  11. PRECEDEX [Concomitant]
     Active Substance: DEXMEDETOMIDINE HYDROCHLORIDE
     Indication: Product used for unknown indication
     Route: 065
  12. NICORANDIL [Concomitant]
     Active Substance: NICORANDIL
     Indication: Product used for unknown indication
     Route: 065
  13. MAGNESIUM SULFATE HEPTAHYDRATE [Concomitant]
     Active Substance: MAGNESIUM SULFATE HEPTAHYDRATE
     Indication: Product used for unknown indication
     Route: 065
  14. SODIUM PHOSPHATE [Concomitant]
     Active Substance: SODIUM PHOSPHATE
     Indication: Product used for unknown indication
     Route: 065
  15. KCL CORRECTIVE [Concomitant]
     Indication: Product used for unknown indication
     Route: 065
  16. HUMULIN R [Concomitant]
     Active Substance: INSULIN HUMAN
     Indication: Product used for unknown indication
     Route: 065
  17. CARPERITIDE [Concomitant]
     Active Substance: CARPERITIDE
     Indication: Product used for unknown indication
     Route: 065
     Dates: start: 20240209, end: 20240313
  18. PHENTOLAMINE MESYLATE [Concomitant]
     Active Substance: PHENTOLAMINE MESYLATE
     Indication: Product used for unknown indication
     Route: 065
  19. ISOTONIC SODIUM CHLORIDE SOLUTION [Concomitant]
     Active Substance: SODIUM CHLORIDE
     Indication: Product used for unknown indication
     Route: 065
     Dates: start: 20240219, end: 20240219
  20. HEPARIN SODIUM [Concomitant]
     Active Substance: HEPARIN SODIUM
     Indication: Product used for unknown indication
     Route: 065
     Dates: start: 20240210, end: 20240219
  21. DEXTROSE [Concomitant]
     Active Substance: DEXTROSE MONOHYDRATE
     Indication: Product used for unknown indication
     Route: 065
     Dates: start: 20240209, end: 20240313
  22. SODIUM CHLORIDE [Concomitant]
     Active Substance: SODIUM CHLORIDE
     Indication: Product used for unknown indication
     Route: 065
  23. ELECTROLYTES NOS [Concomitant]
     Active Substance: ELECTROLYTES NOS
     Indication: Product used for unknown indication
     Route: 065
  24. AMINO ACIDS\DEXTROSE\ELECTROLYTES NOS\VITAMINS [Concomitant]
     Active Substance: AMINO ACIDS\DEXTROSE\ELECTROLYTES NOS\VITAMINS
     Indication: Product used for unknown indication
     Route: 065
  25. CYANOCOBALAMIN\PYRIDOXINE HYDROCHLORIDE\THIAMINE [Concomitant]
     Active Substance: CYANOCOBALAMIN\PYRIDOXINE HYDROCHLORIDE\THIAMINE
     Indication: Product used for unknown indication
     Route: 065
  26. MINERIC-5 [Concomitant]
     Indication: Product used for unknown indication
     Route: 065
  27. FULCALIQ [Concomitant]
     Active Substance: AMINO ACIDS\CARBOHYDRATES\ELECTROLYTES NOS\VITAMINS
     Indication: Product used for unknown indication
     Route: 065
  28. FULCALIQ [Concomitant]
     Active Substance: AMINO ACIDS\CARBOHYDRATES\ELECTROLYTES NOS\VITAMINS
     Route: 065
  29. LINAGLIPTIN [Concomitant]
     Active Substance: LINAGLIPTIN
     Indication: Product used for unknown indication
     Route: 065
     Dates: start: 20240129, end: 20240219
  30. DOXAZOSIN [Concomitant]
     Active Substance: DOXAZOSIN MESYLATE
     Indication: Product used for unknown indication
     Route: 065
     Dates: start: 20240129, end: 20240314
  31. BISOPROLOL FUMARATE [Concomitant]
     Active Substance: BISOPROLOL FUMARATE
     Indication: Product used for unknown indication
     Route: 065
     Dates: start: 20240203, end: 20240314
  32. VONOPRAZAN FUMARATE [Concomitant]
     Active Substance: VONOPRAZAN FUMARATE
     Indication: Product used for unknown indication
     Route: 065
     Dates: start: 20240204, end: 20240314
  33. POTASSIUM IODIDE [Concomitant]
     Active Substance: POTASSIUM IODIDE
     Indication: Product used for unknown indication
     Route: 065
     Dates: start: 20240211, end: 20240214
  34. HEPARINOID [Concomitant]
     Indication: Product used for unknown indication
     Route: 065
     Dates: start: 20240302, end: 20240314

REACTIONS (9)
  - Hypoxia [Recovered/Resolved]
  - Pneumonia [Recovered/Resolved]
  - Hypoglycaemia [Recovered/Resolved]
  - Somnolence [Recovered/Resolved]
  - Hyponatraemia [Recovered/Resolved]
  - Constipation [Recovered/Resolved]
  - Device related infection [Recovered/Resolved]
  - Insomnia [Recovered/Resolved]
  - Diarrhoea [Recovered/Resolved]

NARRATIVE: CASE EVENT DATE: 20240130
